FAERS Safety Report 23409717 (Version 2)
Quarter: 2024Q1

REPORT INFORMATION
  Report Type: Spontaneous
  Country: CN (occurrence: CN)
  Receive Date: 20240117
  Receipt Date: 20240119
  Transmission Date: 20240410
  Serious: Yes (Death, Other)
  Sender: FDA-Public Use
  Company Number: CN-MLMSERVICE-20240104-4761880-1

PATIENT
  Age: 10 Year
  Sex: Male

DRUGS (13)
  1. DOXORUBICIN HYDROCHLORIDE [Suspect]
     Active Substance: DOXORUBICIN HYDROCHLORIDE
     Indication: Neuroblastoma
     Dosage: 25 MG/M2, ON WEEK 10, 17 AND 32 (D1-3)
     Route: 042
     Dates: start: 2014, end: 2015
  2. IRINOTECAN HYDROCHLORIDE [Suspect]
     Active Substance: IRINOTECAN HYDROCHLORIDE
     Indication: Neuroblastoma
     Dosage: 120 MG/M2, ON WEEK 1, 4, 24 AND 36 (D1-3)
     Dates: start: 2014, end: 2015
  3. CISPLATIN [Suspect]
     Active Substance: CISPLATIN
     Indication: Neuroblastoma
     Dosage: 50 MG/M2, ON WEEK 7, 13 AND 28 (D1-4)
     Route: 042
     Dates: start: 2014
  4. DOXORUBICIN HYDROCHLORIDE [Suspect]
     Active Substance: DOXORUBICIN HYDROCHLORIDE
     Indication: Neuroblastoma
     Dosage: 20 MG/M2, LIPOSOMAL ON WEEK 10, 17 AND 32 (D1-3)
     Dates: start: 2014, end: 2015
  5. CYCLOPHOSPHAMIDE [Suspect]
     Active Substance: CYCLOPHOSPHAMIDE
     Indication: Neuroblastoma
     Dosage: 400 MG/M2, CTX+TOPO ON WEEK 1, 4, 24 AND 36 (D1-5)
     Route: 042
     Dates: start: 2014, end: 2015
  6. CYCLOPHOSPHAMIDE [Suspect]
     Active Substance: CYCLOPHOSPHAMIDE
     Dosage: 1800 MG/M2, CTX+DOX+VCR ON WEEK 10, 17 AND 32 (D1-2)
     Route: 042
     Dates: start: 2014, end: 2015
  7. ISOTRETINOIN [Suspect]
     Active Substance: ISOTRETINOIN
     Indication: Neuroblastoma
     Dosage: 5.33 MG/KG/DAY ON WEEK 46 (D1-14)
     Dates: start: 2015, end: 2015
  8. ETOPOSIDE [Suspect]
     Active Substance: ETOPOSIDE
     Indication: Neuroblastoma
     Dosage: 200 MG/M2, ON WEEK 7, 13 AND 28 (D1-3)
     Route: 042
     Dates: start: 2014
  9. VINCRISTINE [Suspect]
     Active Substance: VINCRISTINE
     Indication: Neuroblastoma
     Dosage: 0.017 MG/KG, PUSH, ON WEEK 10, 17 AND 32 ({12 MONTHS, D1-3)
     Dates: start: 2014, end: 2015
  10. VINCRISTINE [Suspect]
     Active Substance: VINCRISTINE
     Dosage: 0.67 MG/M2 ({12 MONTHS AND 12 KG, D1-3)
     Dates: start: 2014, end: 2015
  11. VINCRISTINE [Suspect]
     Active Substance: VINCRISTINE
     Dosage: 0.022 MG/KG (}12 MONTHS, BELOW 12 KG, D1-3)
     Dates: start: 2014, end: 2015
  12. TOPOTECAN [Suspect]
     Active Substance: TOPOTECAN HYDROCHLORIDE
     Indication: Neuroblastoma
     Dosage: 1.2 MG/M2, ON WEEK 1, 4, 24 AND 36 (D1-5)
     Route: 042
     Dates: start: 2014, end: 2015
  13. MESNA [Suspect]
     Active Substance: MESNA
     Indication: Neuroblastoma
     Dosage: PUSH, CTX+DOX+VCR ON WEEK 10, 17, 32 (0, 4, 8 H AFTER CTX, D1-2)
     Dates: start: 2014, end: 2015

REACTIONS (6)
  - PTPN11 gene mutation [Fatal]
  - KMT2A gene mutation [Fatal]
  - Chromosomal deletion [Fatal]
  - Second primary malignancy [Fatal]
  - Acute myeloid leukaemia [Fatal]
  - Off label use [Unknown]

NARRATIVE: CASE EVENT DATE: 20140101
